FAERS Safety Report 5050078-X (Version None)
Quarter: 2006Q3

REPORT INFORMATION
  Report Type: 
  Country: None (occurrence: None)
  Receive Date: 20060713
  Receipt Date: 20060705
  Transmission Date: 20061208
  Serious: Yes (Hospitalization)
  Sender: FDA-Public Use
  Company Number: CA-JNJFOC-20060700619

PATIENT
  Sex: Male
  Weight: 25 kg

DRUGS (3)
  1. CONCERTA [Suspect]
     Indication: ATTENTION DEFICIT/HYPERACTIVITY DISORDER
     Route: 048
  2. LIDOCAIN [Concomitant]
     Indication: TOOTH EXTRACTION
  3. FENTANYL TRANSDERMAL SYSTEM [Concomitant]
     Indication: TOOTH EXTRACTION

REACTIONS (1)
  - HALLUCINATION, VISUAL [None]
